FAERS Safety Report 16955104 (Version 3)
Quarter: 2020Q1

REPORT INFORMATION
  Report Type: Report from Study
  Country: ES (occurrence: ES)
  Receive Date: 20191024
  Receipt Date: 20200117
  Transmission Date: 20200409
  Serious: Yes (Hospitalization)
  Sender: FDA-Public Use
  Company Number: ES-TEVA-2019-ES-1125839

PATIENT
  Age: 81 Year
  Sex: Female

DRUGS (1)
  1. IBUPROFENO [Suspect]
     Active Substance: IBUPROFEN
     Indication: PAIN IN EXTREMITY
     Dosage: 600MG/ 12 HOURS/ 15 DAYS
     Route: 048
     Dates: start: 20161221, end: 2016

REACTIONS (3)
  - Hypertensive emergency [Recovered/Resolved]
  - Acute pulmonary oedema [Recovered/Resolved]
  - Cardiac failure congestive [Recovered/Resolved]

NARRATIVE: CASE EVENT DATE: 20161227
